FAERS Safety Report 5423180-8 (Version None)
Quarter: 2007Q3

REPORT INFORMATION
  Report Type: 
  Country: None (occurrence: None)
  Receive Date: 20070730
  Receipt Date: 20061017
  Transmission Date: 20080115
  Serious: Yes (Life-Threatening, Hospitalization, Other)
  Sender: FDA-Public Use
  Company Number: 200615754BWH

PATIENT
  Age: 32 Year
  Sex: Female

DRUGS (3)
  1. AVELOX [Suspect]
     Indication: PHARYNGOLARYNGEAL PAIN
     Dosage: 400 MG, QD, ORAL
     Route: 048
     Dates: start: 20060923
  2. PROPRANOLOL [Concomitant]
  3. MIDRIN [Concomitant]

REACTIONS (1)
  - ANAPHYLACTIC REACTION [None]
